FAERS Safety Report 16547088 (Version 2)
Quarter: 2019Q3

REPORT INFORMATION
  Report Type: Spontaneous
  Country: GB (occurrence: GB)
  Receive Date: 20190709
  Receipt Date: 20190716
  Transmission Date: 20191004
  Serious: Yes (Other)
  Sender: FDA-Public Use
  Company Number: GB-PFIZER INC-2019292867

PATIENT
  Age: 22 Year
  Sex: Male

DRUGS (6)
  1. FLUCLOXACILLIN [Concomitant]
     Active Substance: FLUCLOXACILLIN
     Indication: STAPHYLOCOCCAL BACTERAEMIA
     Dosage: UNK
  2. SULFASALAZINE. [Suspect]
     Active Substance: SULFASALAZINE
     Indication: PROCTITIS ULCERATIVE
     Dosage: 1 G, 3X/DAY
  3. AMOXYCILLIN [Concomitant]
     Active Substance: AMOXICILLIN
     Indication: SWELLING FACE
  4. PREDNISOLONE. [Concomitant]
     Active Substance: PREDNISOLONE
     Indication: PROCTITIS ULCERATIVE
     Dosage: UNK
     Route: 054
  5. AMOXYCILLIN [Concomitant]
     Active Substance: AMOXICILLIN
     Indication: HEADACHE
     Dosage: UNK
  6. AMOXYCILLIN [Concomitant]
     Active Substance: AMOXICILLIN
     Indication: OROPHARYNGEAL PAIN

REACTIONS (1)
  - Bone marrow necrosis [Recovered/Resolved]
